FAERS Safety Report 10214393 (Version 2)
Quarter: 2014Q4

REPORT INFORMATION
  Report Type: Report from Study
  Country: JP (occurrence: JP)
  Receive Date: 20140603
  Receipt Date: 20141111
  Transmission Date: 20150528
  Serious: Yes (Hospitalization, Other)
  Sender: FDA-Public Use
  Company Number: JP-GLAXOSMITHKLINE-B0900593A

PATIENT
  Age: 78 Year
  Sex: Female

DRUGS (51)
  1. SOLU-MEDROL [Concomitant]
     Active Substance: METHYLPREDNISOLONE SODIUM SUCCINATE
     Indication: RASH
     Route: 042
     Dates: start: 20130613, end: 20130613
  2. SOLU-MEDROL [Concomitant]
     Active Substance: METHYLPREDNISOLONE SODIUM SUCCINATE
     Route: 042
     Dates: start: 20131106, end: 20131106
  3. SOLU-MEDROL [Concomitant]
     Active Substance: METHYLPREDNISOLONE SODIUM SUCCINATE
     Route: 042
     Dates: start: 20131205, end: 20131205
  4. ACETAMINOPHEN. [Concomitant]
     Active Substance: ACETAMINOPHEN
     Route: 065
     Dates: start: 20130801, end: 20130801
  5. ACETAMINOPHEN. [Concomitant]
     Active Substance: ACETAMINOPHEN
     Route: 065
     Dates: start: 20131106, end: 20131106
  6. RESTAMIN [Concomitant]
     Active Substance: DIPHENHYDRAMINE
     Route: 065
     Dates: start: 20131106, end: 20131106
  7. OFATUMUMAB [Suspect]
     Active Substance: OFATUMUMAB
     Route: 041
     Dates: start: 20130620, end: 20130620
  8. OFATUMUMAB [Suspect]
     Active Substance: OFATUMUMAB
     Route: 041
     Dates: start: 20130925, end: 20130925
  9. SOLU-MEDROL [Concomitant]
     Active Substance: METHYLPREDNISOLONE SODIUM SUCCINATE
     Route: 042
     Dates: start: 20130725, end: 20130725
  10. ACETAMINOPHEN. [Concomitant]
     Active Substance: ACETAMINOPHEN
     Route: 065
     Dates: start: 20130627, end: 20130627
  11. RESTAMIN [Concomitant]
     Active Substance: DIPHENHYDRAMINE
     Route: 065
     Dates: start: 20130627, end: 20130627
  12. RESTAMIN [Concomitant]
     Active Substance: DIPHENHYDRAMINE
     Route: 065
     Dates: start: 20130801, end: 20130801
  13. RESTAMIN [Concomitant]
     Active Substance: DIPHENHYDRAMINE
     Route: 065
     Dates: start: 20130925, end: 20130925
  14. RESTAMIN [Concomitant]
     Active Substance: DIPHENHYDRAMINE
     Route: 065
     Dates: start: 20131205, end: 20131205
  15. BAKTAR [Concomitant]
     Active Substance: SULFAMETHOXAZOLE\TRIMETHOPRIM
     Indication: INFECTION PROPHYLAXIS
     Route: 048
  16. CEFEPIME [Concomitant]
     Active Substance: CEFEPIME\CEFEPIME HYDROCHLORIDE
     Indication: PNEUMONIA
     Route: 051
  17. OFATUMUMAB [Suspect]
     Active Substance: OFATUMUMAB
     Route: 041
     Dates: start: 20130829, end: 20130829
  18. SOLU-MEDROL [Concomitant]
     Active Substance: METHYLPREDNISOLONE SODIUM SUCCINATE
     Route: 042
     Dates: start: 20130620, end: 20130620
  19. SOLU-MEDROL [Concomitant]
     Active Substance: METHYLPREDNISOLONE SODIUM SUCCINATE
     Route: 042
     Dates: start: 20130925, end: 20130925
  20. ACETAMINOPHEN. [Concomitant]
     Active Substance: ACETAMINOPHEN
     Route: 065
     Dates: start: 20130925, end: 20130925
  21. ZOVIRAX [Concomitant]
     Active Substance: ACYCLOVIR
     Indication: INFECTION PROPHYLAXIS
     Route: 048
  22. OFATUMUMAB [Suspect]
     Active Substance: OFATUMUMAB
     Route: 041
     Dates: start: 20130627, end: 20130627
  23. OFATUMUMAB [Suspect]
     Active Substance: OFATUMUMAB
     Route: 041
     Dates: start: 20131205, end: 20131205
  24. ACETAMINOPHEN. [Concomitant]
     Active Substance: ACETAMINOPHEN
     Route: 065
     Dates: start: 20130718, end: 20130718
  25. OFATUMUMAB [Suspect]
     Active Substance: OFATUMUMAB
     Route: 041
     Dates: start: 20130704, end: 20130704
  26. ACETAMINOPHEN. [Concomitant]
     Active Substance: ACETAMINOPHEN
     Route: 065
     Dates: start: 20130829, end: 20130829
  27. RESTAMIN [Concomitant]
     Active Substance: DIPHENHYDRAMINE
     Route: 065
     Dates: start: 20130718, end: 20130718
  28. OFATUMUMAB [Suspect]
     Active Substance: OFATUMUMAB
     Route: 041
     Dates: start: 20130613, end: 20130613
  29. OFATUMUMAB [Suspect]
     Active Substance: OFATUMUMAB
     Route: 041
     Dates: start: 20130718, end: 20130718
  30. OFATUMUMAB [Suspect]
     Active Substance: OFATUMUMAB
     Route: 041
     Dates: start: 20130725, end: 20130725
  31. OFATUMUMAB [Suspect]
     Active Substance: OFATUMUMAB
     Route: 041
     Dates: start: 20131106, end: 20131106
  32. SOLU-MEDROL [Concomitant]
     Active Substance: METHYLPREDNISOLONE SODIUM SUCCINATE
     Route: 042
     Dates: start: 20130801, end: 20130801
  33. SOLU-MEDROL [Concomitant]
     Active Substance: METHYLPREDNISOLONE SODIUM SUCCINATE
     Route: 042
     Dates: start: 20130829, end: 20130829
  34. RESTAMIN [Concomitant]
     Active Substance: DIPHENHYDRAMINE
     Route: 065
     Dates: start: 20130704, end: 20130704
  35. RESTAMIN [Concomitant]
     Active Substance: DIPHENHYDRAMINE
     Route: 065
     Dates: start: 20130711, end: 20130711
  36. OFATUMUMAB [Suspect]
     Active Substance: OFATUMUMAB
     Route: 041
     Dates: start: 20130711, end: 20130711
  37. SOLU-MEDROL [Concomitant]
     Active Substance: METHYLPREDNISOLONE SODIUM SUCCINATE
     Route: 042
     Dates: start: 20130711, end: 20130711
  38. ACETAMINOPHEN. [Concomitant]
     Active Substance: ACETAMINOPHEN
     Route: 065
     Dates: start: 20130613, end: 20130613
  39. ACETAMINOPHEN. [Concomitant]
     Active Substance: ACETAMINOPHEN
     Route: 065
     Dates: start: 20130725, end: 20130725
  40. RESTAMIN [Concomitant]
     Active Substance: DIPHENHYDRAMINE
     Route: 065
     Dates: start: 20130620, end: 20130620
  41. OFATUMUMAB [Suspect]
     Active Substance: OFATUMUMAB
     Route: 041
     Dates: start: 20130801, end: 20130801
  42. SOLU-MEDROL [Concomitant]
     Active Substance: METHYLPREDNISOLONE SODIUM SUCCINATE
     Route: 042
     Dates: start: 20130627, end: 20130627
  43. SOLU-MEDROL [Concomitant]
     Active Substance: METHYLPREDNISOLONE SODIUM SUCCINATE
     Route: 042
     Dates: start: 20130704, end: 20130704
  44. SOLU-MEDROL [Concomitant]
     Active Substance: METHYLPREDNISOLONE SODIUM SUCCINATE
     Route: 042
     Dates: start: 20130718, end: 20130718
  45. ACETAMINOPHEN. [Concomitant]
     Active Substance: ACETAMINOPHEN
     Route: 065
     Dates: start: 20130620, end: 20130620
  46. ACETAMINOPHEN. [Concomitant]
     Active Substance: ACETAMINOPHEN
     Route: 065
     Dates: start: 20130704, end: 20130704
  47. ACETAMINOPHEN. [Concomitant]
     Active Substance: ACETAMINOPHEN
     Route: 065
     Dates: start: 20130711, end: 20130711
  48. ACETAMINOPHEN. [Concomitant]
     Active Substance: ACETAMINOPHEN
     Route: 065
     Dates: start: 20131205, end: 20131205
  49. RESTAMIN [Concomitant]
     Active Substance: DIPHENHYDRAMINE
     Route: 065
     Dates: start: 20130613, end: 20130613
  50. RESTAMIN [Concomitant]
     Active Substance: DIPHENHYDRAMINE
     Route: 065
     Dates: start: 20130725, end: 20130725
  51. RESTAMIN [Concomitant]
     Active Substance: DIPHENHYDRAMINE
     Route: 065
     Dates: start: 20130829, end: 20130829

REACTIONS (15)
  - Dizziness [Recovering/Resolving]
  - Erythema [Recovered/Resolved]
  - Ear discomfort [Recovering/Resolving]
  - Productive cough [Recovered/Resolved]
  - Cough [Recovered/Resolved]
  - Eyelid oedema [Recovered/Resolved]
  - Eyelid oedema [Recovering/Resolving]
  - Pneumonia [Recovered/Resolved]
  - Headache [Recovered/Resolved]
  - Dysphonia [Recovered/Resolved]
  - Oropharyngeal discomfort [Recovered/Resolved]
  - Deafness [Recovered/Resolved]
  - Urticaria [Recovered/Resolved]
  - Cough [Recovered/Resolved]
  - Erythema [Recovering/Resolving]

NARRATIVE: CASE EVENT DATE: 20130613
